FAERS Safety Report 5749087-4 (Version None)
Quarter: 2008Q2

REPORT INFORMATION
  Report Type: 
  Country: None (occurrence: None)
  Receive Date: 20080521
  Receipt Date: 20080521
  Transmission Date: 20081010
  Serious: No
  Sender: FDA-Public Use
  Company Number: None

PATIENT

DRUGS (1)
  1. LEVOTHYROXINE SODIUM [Suspect]

REACTIONS (10)
  - BLOOD DISORDER [None]
  - CARDIAC ARREST [None]
  - CARDIAC FAILURE CONGESTIVE [None]
  - DELIRIUM [None]
  - ENDOTRACHEAL INTUBATION COMPLICATION [None]
  - INFECTION [None]
  - LUNG INFECTION [None]
  - MEDICATION ERROR [None]
  - OVERDOSE [None]
  - RESPIRATORY DISORDER [None]
